FAERS Safety Report 4630980-0 (Version None)
Quarter: 2005Q2

REPORT INFORMATION
  Report Type: 
  Country: None (occurrence: None)
  Receive Date: 20050406
  Receipt Date: 20050406
  Transmission Date: 20051028
  Serious: Yes (Hospitalization)
  Sender: FDA-Public Use
  Company Number: None

PATIENT
  Age: 73 Year
  Sex: Male
  Weight: 115 kg

DRUGS (8)
  1. PACLITAXEL [Suspect]
     Indication: NON-SMALL CELL LUNG CANCER
     Dosage: 111 MG QD INTRAVENOUS
     Route: 042
     Dates: start: 20020605, end: 20020617
  2. CARBOPLATIN [Suspect]
     Dosage: 197 MG QD INTRAVENOUS
     Route: 042
     Dates: start: 20020605, end: 20020617
  3. ALBUTEROL [Concomitant]
  4. WARFARINE [Concomitant]
  5. COMBIVENT [Concomitant]
  6. ADVAIR DISKUS 100/50 [Concomitant]
  7. DIGOXIN [Concomitant]
  8. DILTIAZEM [Concomitant]

REACTIONS (1)
  - PLEURAL EFFUSION [None]
